FAERS Safety Report 21760972 (Version 1)
Quarter: 2022Q4

REPORT INFORMATION
  Report Type: Spontaneous
  Country: US (occurrence: US)
  Receive Date: 20221221
  Receipt Date: 20221221
  Transmission Date: 20230112
  Serious: No
  Sender: FDA-Public Use
  Company Number: US-AMNEAL PHARMACEUTICALS-2022-AMRX-01958

PATIENT
  Sex: Male
  Weight: 85.7 kg

DRUGS (3)
  1. OXYBUTYNIN CHLORIDE [Suspect]
     Active Substance: OXYBUTYNIN CHLORIDE
     Indication: Product used for unknown indication
     Dosage: 1 CAPSULES, 2 /DAY
     Route: 048
     Dates: start: 202204
  2. ATENOLOL [Concomitant]
     Active Substance: ATENOLOL
     Indication: Blood pressure measurement
     Dosage: 1 TABLETS, 1 /DAY
     Route: 048
     Dates: start: 2000
  3. TAMSULOSIN [Concomitant]
     Active Substance: TAMSULOSIN
     Indication: Benign prostatic hyperplasia
     Dosage: 1 TABLETS, 2 /DAY
     Route: 048
     Dates: start: 202105

REACTIONS (1)
  - Dyspnoea [Not Recovered/Not Resolved]
